FAERS Safety Report 19889213 (Version 2)
Quarter: 2021Q4

REPORT INFORMATION
  Report Type: Report from Study
  Country: US (occurrence: US)
  Receive Date: 20210927
  Receipt Date: 20211004
  Transmission Date: 20220303
  Serious: Yes (Other)
  Sender: FDA-Public Use
  Company Number: US-ALLERGAN-2132734US

PATIENT
  Sex: Female
  Weight: 58.05 kg

DRUGS (12)
  1. BRIMONIDINE [Suspect]
     Active Substance: BRIMONIDINE TARTRATE
     Indication: Open angle glaucoma
     Dosage: 2 GTT, TID
  2. BRIMONIDINE [Suspect]
     Active Substance: BRIMONIDINE TARTRATE
     Dosage: 2 GTT, TID
     Dates: start: 2001
  3. RESTASIS [Concomitant]
     Active Substance: CYCLOSPORINE
     Indication: Dry eye
     Dosage: UNK
     Dates: start: 2014, end: 2017
  4. TRADJENTA [Concomitant]
     Active Substance: LINAGLIPTIN
     Indication: Type 2 diabetes mellitus
     Dosage: 5 MG, QD
  5. AZOPT [Concomitant]
     Active Substance: BRINZOLAMIDE
     Indication: Glaucoma
     Dosage: THREE TIMES DAILY
  6. TRAVOPROST [Concomitant]
     Active Substance: TRAVOPROST
     Indication: Glaucoma
     Dosage: ONCE DAILY
  7. RHOPRESSA [Concomitant]
     Active Substance: NETARSUDIL MESYLATE
     Indication: Glaucoma
     Dosage: ONCE DAILY
  8. MONTELUKAST [Concomitant]
     Active Substance: MONTELUKAST SODIUM
     Indication: Hypersensitivity
     Dosage: 10 MG, QD
  9. QUINAPRIL [Concomitant]
     Active Substance: QUINAPRIL
     Indication: Atrial fibrillation
     Dosage: 20 MG, BID
  10. THERATEARS EXTRA [Concomitant]
     Active Substance: CARBOXYMETHYLCELLULOSE SODIUM
     Indication: Dry eye
     Dosage: 1 GTT, TID
  11. VITAMINS NOS [Concomitant]
     Active Substance: VITAMINS
     Indication: Renal disorder
  12. UNSPECIFIED INGREDIENT [Concomitant]
     Active Substance: UNSPECIFIED INGREDIENT
     Indication: Blood cholesterol increased

REACTIONS (10)
  - Uterine cancer [Recovered/Resolved]
  - Hypoacusis [Not Recovered/Not Resolved]
  - Renal disorder [Not Recovered/Not Resolved]
  - Uterine prolapse [Recovered/Resolved]
  - Androgenetic alopecia [Not Recovered/Not Resolved]
  - Tremor [Not Recovered/Not Resolved]
  - Dry eye [Not Recovered/Not Resolved]
  - Atrial fibrillation [Unknown]
  - Product administration error [Unknown]
  - Blood cholesterol increased [Recovered/Resolved]

NARRATIVE: CASE EVENT DATE: 20070101
